FAERS Safety Report 25153728 (Version 1)
Quarter: 2025Q2

REPORT INFORMATION
  Report Type: Spontaneous
  Country: PR (occurrence: PR)
  Receive Date: 20250403
  Receipt Date: 20250403
  Transmission Date: 20250716
  Serious: Yes (Hospitalization)
  Sender: GERON CORP
  Company Number: US-GERON CORPORATION-PR-GER-25-000010

PATIENT
  Age: 82 Year
  Sex: Male

DRUGS (1)
  1. RYTELO [Suspect]
     Active Substance: IMETELSTAT SODIUM
     Indication: Myelodysplastic syndrome
     Dosage: 400 MILLIGRAM, 3W
     Route: 042

REACTIONS (1)
  - Platelet count decreased [Not Recovered/Not Resolved]

NARRATIVE: CASE EVENT DATE: 20250115
